FAERS Safety Report 15993988 (Version 1)
Quarter: 2019Q1

REPORT INFORMATION
  Report Type: Spontaneous
  Country: US (occurrence: US)
  Receive Date: 20190222
  Receipt Date: 20190222
  Transmission Date: 20190418
  Serious: Yes (Other)
  Sender: FDA-Public Use
  Company Number: US-CURIUM-200400212

PATIENT
  Age: 53 Year
  Sex: Female

DRUGS (1)
  1. SODIUM IODIDE (I 123) (200) [Suspect]
     Active Substance: SODIUM IODIDE I-123
     Dosage: NUMBER OF SEPARATE DOSAGES: 1
     Route: 048

REACTIONS (5)
  - Nausea [Recovered/Resolved]
  - Dyspnoea [Recovered/Resolved]
  - Urinary retention [Recovered/Resolved]
  - Diarrhoea [Recovered/Resolved]
  - Throat tightness [Recovered/Resolved]
